FAERS Safety Report 15244117 (Version 3)
Quarter: 2019Q2

REPORT INFORMATION
  Report Type: Report from Study
  Country: US (occurrence: US)
  Receive Date: 20180806
  Receipt Date: 20190610
  Transmission Date: 20190711
  Serious: Yes (Other)
  Sender: FDA-Public Use
  Company Number: US-SAKK-2018SA176666AA

PATIENT
  Age: 35 Year
  Sex: Male

DRUGS (3)
  1. SOLU-MEDROL [Concomitant]
     Active Substance: METHYLPREDNISOLONE SODIUM SUCCINATE
     Indication: MUSCULAR WEAKNESS
  2. ALEMTUZUMAB [Suspect]
     Active Substance: ALEMTUZUMAB
     Indication: MULTIPLE SCLEROSIS
     Dosage: 12 MG, QD
     Route: 041
     Dates: start: 20180604, end: 20180608
  3. SOLU-MEDROL [Concomitant]
     Active Substance: METHYLPREDNISOLONE SODIUM SUCCINATE
     Indication: MUSCULAR WEAKNESS
     Route: 042

REACTIONS (9)
  - Dehydration [Recovering/Resolving]
  - Memory impairment [Not Recovered/Not Resolved]
  - Paraesthesia [Recovering/Resolving]
  - Head discomfort [Recovering/Resolving]
  - Nasopharyngitis [Recovering/Resolving]
  - Muscular weakness [Recovering/Resolving]
  - Respiratory tract congestion [Recovering/Resolving]
  - Arthralgia [Recovering/Resolving]
  - Optic neuritis [Not Recovered/Not Resolved]

NARRATIVE: CASE EVENT DATE: 201806
